FAERS Safety Report 22147821 (Version 1)
Quarter: 2023Q1

REPORT INFORMATION
  Report Type: Spontaneous
  Country: US (occurrence: US)
  Receive Date: 20230328
  Receipt Date: 20230328
  Transmission Date: 20230418
  Serious: Yes (Other)
  Sender: FDA-Public Use
  Company Number: US-OTSUKA-2023_007727

PATIENT
  Sex: Female

DRUGS (2)
  1. ABILIFY [Suspect]
     Active Substance: ARIPIPRAZOLE
     Indication: Depression
     Dosage: 10 MG
     Route: 065
  2. ABILIFY [Suspect]
     Active Substance: ARIPIPRAZOLE
     Dosage: 5 MG
     Route: 065

REACTIONS (7)
  - Hallucination, visual [Unknown]
  - Hallucination, auditory [Unknown]
  - Adverse drug reaction [Unknown]
  - Restlessness [Unknown]
  - Anxiety [Unknown]
  - Agitation [Unknown]
  - Death of relative [Unknown]
